FAERS Safety Report 11038891 (Version 2)
Quarter: 2015Q2

REPORT INFORMATION
  Report Type: Spontaneous
  Country: US (occurrence: US)
  Receive Date: 20150416
  Receipt Date: 20150525
  Transmission Date: 20150821
  Serious: Yes (Other)
  Sender: FDA-Public Use
  Company Number: US-JNJFOC-20150302694

PATIENT
  Sex: Female

DRUGS (1)
  1. XARELTO [Suspect]
     Active Substance: RIVAROXABAN
     Indication: CARDIAC ASSISTANCE DEVICE USER
     Dosage: ONCE IN THE EVENING
     Route: 048
     Dates: start: 201308, end: 201408

REACTIONS (7)
  - Blood disorder [Unknown]
  - Dizziness [Unknown]
  - Contusion [Not Recovered/Not Resolved]
  - Pruritus [Unknown]
  - Haemorrhage [Unknown]
  - Skin discolouration [Recovered/Resolved]
  - Upper extremity mass [Recovered/Resolved]

NARRATIVE: CASE EVENT DATE: 201308
